FAERS Safety Report 20438840 (Version 3)
Quarter: 2024Q1

REPORT INFORMATION
  Report Type: Spontaneous
  Country: US (occurrence: US)
  Receive Date: 20220207
  Receipt Date: 20240109
  Transmission Date: 20240410
  Serious: No
  Sender: FDA-Public Use
  Company Number: US-PFIZER INC-202101207735

PATIENT
  Age: 65 Year
  Sex: Female

DRUGS (3)
  1. XELJANZ XR [Suspect]
     Active Substance: TOFACITINIB CITRATE
     Dosage: 11 MG
  2. XELJANZ XR [Suspect]
     Active Substance: TOFACITINIB CITRATE
     Dosage: 11 MG, 2X/DAY (TOOK TWO TABLETS ON MONDAY AND WAS TOLD TO SKIP THE NEXT DAY SINCE SHE TOOK TWO)
  3. XELJANZ XR [Suspect]
     Active Substance: TOFACITINIB CITRATE
     Dosage: 11 MG

REACTIONS (4)
  - Wrong dose [Unknown]
  - Nasopharyngitis [Unknown]
  - Gait disturbance [Unknown]
  - Blood pressure abnormal [Unknown]
